FAERS Safety Report 4531994-1 (Version None)
Quarter: 2004Q4

REPORT INFORMATION
  Report Type: 
  Country: None (occurrence: None)
  Receive Date: 20041220
  Receipt Date: 20041209
  Transmission Date: 20050328
  Serious: Yes (Death)
  Sender: FDA-Public Use
  Company Number: US-BRISTOL-MYERS SQUIBB COMPANY-12793634

PATIENT
  Age: 41 Year
  Sex: Female

DRUGS (5)
  1. CYCLOPHOSPHAMIDE [Suspect]
     Indication: BREAST CANCER
  2. ETOPOSIDE [Suspect]
     Indication: BREAST CANCER
  3. CISPLATIN [Suspect]
     Indication: BREAST CANCER
  4. TAMOXIFEN CITRATE [Suspect]
     Indication: BREAST CANCER
  5. RADIOTHERAPY [Concomitant]
     Indication: BREAST CANCER

REACTIONS (3)
  - MYELODYSPLASTIC SYNDROME [None]
  - REFRACTORY ANAEMIA WITH AN EXCESS OF BLASTS [None]
  - TREATMENT RELATED SECONDARY MALIGNANCY [None]
